FAERS Safety Report 5629370-3 (Version None)
Quarter: 2008Q1

REPORT INFORMATION
  Report Type: 
  Country: None (occurrence: None)
  Receive Date: 20080213
  Receipt Date: 20080213
  Transmission Date: 20080703
  Serious: No
  Sender: FDA-Public Use
  Company Number: None

PATIENT
  Sex: Female
  Weight: 59.4212 kg

DRUGS (2)
  1. FEXOFENADINE [Suspect]
     Indication: RHINITIS SEASONAL
     Dosage: 180MG  QD  PO
     Route: 048
  2. FEXOFENADINE [Suspect]
     Indication: URTICARIA
     Dosage: 180MG  QD  PO
     Route: 048

REACTIONS (2)
  - DRUG INEFFECTIVE [None]
  - STOMACH DISCOMFORT [None]
